FAERS Safety Report 4441002-9 (Version None)
Quarter: 2004Q3

REPORT INFORMATION
  Report Type: 
  Country: None (occurrence: None)
  Receive Date: 20040728
  Receipt Date: 20040507
  Transmission Date: 20050211
  Serious: No
  Sender: FDA-Public Use
  Company Number: USA040465048

PATIENT
  Age: 10 Year
  Sex: Male
  Weight: 34 kg

DRUGS (3)
  1. STRATTERA [Suspect]
     Indication: ATTENTION DEFICIT/HYPERACTIVITY DISORDER
     Dosage: 60 MG IN THE MORNING
     Dates: start: 20030601
  2. ADDERALL 10 [Concomitant]
  3. MIRALAX [Concomitant]

REACTIONS (3)
  - ERUCTATION [None]
  - FAECALOMA [None]
  - PRESCRIBED OVERDOSE [None]
